FAERS Safety Report 10767109 (Version 1)
Quarter: 2015Q1

REPORT INFORMATION
  Report Type: Spontaneous
  Country: NO (occurrence: NO)
  Receive Date: 20150205
  Receipt Date: 20150205
  Transmission Date: 20150721
  Serious: Yes (Death)
  Sender: FDA-Public Use
  Company Number: NO-BAYER-2015-013547

PATIENT
  Age: 79 Year
  Sex: Female

DRUGS (8)
  1. KLEXANE [Interacting]
     Active Substance: ENOXAPARIN
     Route: 058
     Dates: start: 20141119
  2. SELOKEN [Concomitant]
     Active Substance: METOPROLOL
     Indication: ACUTE MYOCARDIAL INFARCTION
     Dosage: 5 MG, UNK
     Route: 042
     Dates: start: 20141119
  3. PLAVIX [Interacting]
     Active Substance: CLOPIDOGREL BISULFATE
     Indication: ACUTE MYOCARDIAL INFARCTION
     Dates: start: 20141119
  4. ASPIRIN. [Suspect]
     Active Substance: ASPIRIN
  5. METALYSE [Suspect]
     Active Substance: TENECTEPLASE
     Indication: ACUTE MYOCARDIAL INFARCTION
     Dates: start: 20141119, end: 20141119
  6. GLYCERYL TRINITRATE [Concomitant]
     Active Substance: NITROGLYCERIN
  7. OXYGEN. [Concomitant]
     Active Substance: OXYGEN
  8. MORPHINE [Concomitant]
     Active Substance: MORPHINE

REACTIONS (1)
  - Cerebral haemorrhage [Fatal]

NARRATIVE: CASE EVENT DATE: 20141120
